FAERS Safety Report 14155078 (Version 1)
Quarter: 2017Q4

REPORT INFORMATION
  Report Type: Report from Study
  Country: None (occurrence: BR)
  Receive Date: 20171103
  Receipt Date: 20171103
  Transmission Date: 20180321
  Serious: Yes (Hospitalization, Other)
  Sender: FDA-Public Use
  Company Number: BR-ABBVIE-17K-020-2146268-00

PATIENT
  Age: 34 Year
  Sex: Female
  Weight: 46 kg

DRUGS (4)
  1. PANTOPRAZOLE [Concomitant]
     Active Substance: PANTOPRAZOLE
     Indication: PROPHYLAXIS
  2. HUMIRA [Suspect]
     Active Substance: ADALIMUMAB
     Indication: CROHN^S DISEASE
     Dosage: LOADING DOSE WEEK 0
     Route: 058
     Dates: start: 20150630, end: 20150630
  3. HUMIRA [Suspect]
     Active Substance: ADALIMUMAB
     Dosage: MAINTENANCE DOSE
     Route: 058
     Dates: start: 2015
  4. HUMIRA [Suspect]
     Active Substance: ADALIMUMAB
     Dosage: LOADING DOSE WEEK 2
     Route: 058
     Dates: start: 201507, end: 201507

REACTIONS (30)
  - Middle ear effusion [Not Recovered/Not Resolved]
  - Rash macular [Recovered/Resolved]
  - Flatulence [Recovering/Resolving]
  - Olfactory nerve disorder [Not Recovered/Not Resolved]
  - Diarrhoea [Recovering/Resolving]
  - Influenza [Not Recovered/Not Resolved]
  - Malaise [Recovering/Resolving]
  - Candida infection [Unknown]
  - Hypogeusia [Unknown]
  - Abdominal pain [Recovering/Resolving]
  - Catarrh [Recovering/Resolving]
  - Deafness [Not Recovered/Not Resolved]
  - Rhinitis [Not Recovered/Not Resolved]
  - Gastritis [Recovering/Resolving]
  - Enteritis [Recovering/Resolving]
  - Pharyngitis [Recovering/Resolving]
  - Sinusitis [Recovering/Resolving]
  - Clostridium test positive [Recovered/Resolved]
  - Syncope [Recovered/Resolved]
  - Meningitis [Recovered/Resolved]
  - Immunodeficiency [Not Recovered/Not Resolved]
  - Sputum discoloured [Recovering/Resolving]
  - Dehydration [Recovered/Resolved]
  - Streptococcal infection [Recovered/Resolved]
  - Tonsillar disorder [Unknown]
  - Asthenia [Recovered/Resolved]
  - Craniocerebral injury [Recovered/Resolved]
  - Fall [Recovered/Resolved]
  - Ear pain [Recovering/Resolving]
  - Constipation [Recovered/Resolved]

NARRATIVE: CASE EVENT DATE: 2015
